FAERS Safety Report 8116822-X (Version None)
Quarter: 2012Q1

REPORT INFORMATION
  Report Type: 
  Country: None (occurrence: None)
  Receive Date: 20120206
  Receipt Date: 20120202
  Transmission Date: 20120608
  Serious: Yes (Hospitalization)
  Sender: FDA-Public Use
  Company Number: PHHY2012AU005481

PATIENT
  Sex: Female

DRUGS (2)
  1. ZOLEDRONOC ACID [Suspect]
     Indication: OSTEOPOROSIS
     Dosage: 5 MG, UNK
     Route: 042
     Dates: start: 20110111
  2. MURELAX [Concomitant]
     Dosage: HALF TO ONE TABLET A NIGHT WHEN REQUIRED
     Route: 048

REACTIONS (3)
  - MICTURITION URGENCY [None]
  - MALAISE [None]
  - DYSSTASIA [None]
